FAERS Safety Report 5115290-X (Version None)
Quarter: 2006Q3

REPORT INFORMATION
  Report Type: 
  Country: None (occurrence: None)
  Receive Date: 20060926
  Receipt Date: 20060807
  Transmission Date: 20061208
  Serious: Yes (Other)
  Sender: FDA-Public Use
  Company Number: DE-GLAXOSMITHKLINE-D0050549A

PATIENT

DRUGS (3)
  1. ZOFRAN [Suspect]
     Dosage: 8MG FIVE TIMES PER DAY
     Route: 048
     Dates: start: 20060713, end: 20060728
  2. AMANTADINE HCL [Concomitant]
     Dosage: 300MG PER DAY
     Route: 065
     Dates: start: 20060713, end: 20060728
  3. UNKNOWN MEDICATION [Concomitant]
     Dosage: 2TAB THREE TIMES PER DAY
     Route: 048
     Dates: start: 20060713, end: 20060728

REACTIONS (3)
  - ABDOMINAL PAIN UPPER [None]
  - HALLUCINATION, AUDITORY [None]
  - HALLUCINATION, VISUAL [None]
